FAERS Safety Report 5391099-7 (Version None)
Quarter: 2007Q3

REPORT INFORMATION
  Report Type: 
  Country: None (occurrence: None)
  Receive Date: 20070717
  Receipt Date: 20070706
  Transmission Date: 20080115
  Serious: Yes (Hospitalization)
  Sender: FDA-Public Use
  Company Number: 235616K07USA

PATIENT
  Age: 34 Year
  Sex: Female

DRUGS (1)
  1. REBIF [Suspect]
     Indication: MULTIPLE SCLEROSIS
     Dates: end: 20070101

REACTIONS (7)
  - ALCOHOL POISONING [None]
  - DEPRESSION [None]
  - INTENTIONAL OVERDOSE [None]
  - MULTIPLE SCLEROSIS [None]
  - ROAD TRAFFIC ACCIDENT [None]
  - SELF INJURIOUS BEHAVIOUR [None]
  - SUICIDE ATTEMPT [None]
